FAERS Safety Report 5977664-4 (Version None)
Quarter: 2008Q4

REPORT INFORMATION
  Report Type: 
  Country: None (occurrence: None)
  Receive Date: 20081201
  Receipt Date: 20081201
  Transmission Date: 20090506
  Serious: No
  Sender: FDA-Public Use
  Company Number: None

PATIENT
  Sex: Male
  Weight: 90.7194 kg

DRUGS (1)
  1. LEVAQUIN [Suspect]
     Indication: INFECTION
     Dosage: 750 MG 1X PER DAY PO
     Route: 048
     Dates: start: 20081119, end: 20081119

REACTIONS (6)
  - ASTHENIA [None]
  - DYSSTASIA [None]
  - FEAR [None]
  - GAIT DISTURBANCE [None]
  - MOVEMENT DISORDER [None]
  - TENDON PAIN [None]
